FAERS Safety Report 6355682-4 (Version None)
Quarter: 2009Q3

REPORT INFORMATION
  Report Type: 
  Country: None (occurrence: None)
  Receive Date: 20090910
  Receipt Date: 20090827
  Transmission Date: 20100115
  Serious: Yes (Disabling)
  Sender: FDA-Public Use
  Company Number: PHHY2009GB24000

PATIENT
  Age: 80 Year
  Sex: Female

DRUGS (1)
  1. VISUDYNE [Suspect]
     Indication: MACULAR DEGENERATION
     Dates: start: 20051025, end: 20051025

REACTIONS (2)
  - DACRYOSTENOSIS ACQUIRED [None]
  - LACRIMATION INCREASED [None]
